FAERS Safety Report 6267262-X (Version None)
Quarter: 2009Q3

REPORT INFORMATION
  Report Type: 
  Country: None (occurrence: None)
  Receive Date: 20090714
  Receipt Date: 20090702
  Transmission Date: 20100115
  Serious: Yes (Death, Other)
  Sender: FDA-Public Use
  Company Number: PT-PFIZER INC-2009218580

PATIENT
  Age: 27 Year

DRUGS (12)
  1. ZYVOXID [Suspect]
     Indication: INFECTION
     Dosage: UNK
     Route: 042
  2. AZITHROMYCIN [Concomitant]
     Dosage: UNK
     Route: 048
  3. DOMPERIDONE [Concomitant]
     Dosage: UNK
     Route: 048
  4. E-VITAMIN [Concomitant]
     Dosage: UNK
     Route: 048
  5. IBUPROFENE [Concomitant]
     Dosage: UNK
     Route: 048
  6. ACETYLCYSTEINE [Concomitant]
  7. RUPATADINE [Concomitant]
  8. EBASTINE [Concomitant]
  9. FUROSEMID [Concomitant]
  10. DOSULEPIN [Concomitant]
  11. OXAZEPAM [Concomitant]
  12. PANCREATIN [Concomitant]
     Dosage: UNK
     Route: 048

REACTIONS (2)
  - ANAEMIA [None]
  - SEPSIS [None]
